FAERS Safety Report 5900650-7 (Version None)
Quarter: 2008Q3

REPORT INFORMATION
  Report Type: 
  Country: None (occurrence: None)
  Receive Date: 20080926
  Receipt Date: 20080915
  Transmission Date: 20090109
  Serious: Yes (Other)
  Sender: FDA-Public Use
  Company Number: BR-PFIZER INC-2008078655

PATIENT
  Sex: Female
  Weight: 81 kg

DRUGS (1)
  1. CHANTIX [Suspect]
     Indication: SMOKING CESSATION THERAPY
     Dosage: TEXT:HALF TABLET-FREQ:EVERY DAY
     Route: 048
     Dates: start: 20080901

REACTIONS (3)
  - ANAEMIA [None]
  - NAUSEA [None]
  - RETCHING [None]
